FAERS Safety Report 6974697-6 (Version None)
Quarter: 2010Q3

REPORT INFORMATION
  Report Type: 
  Country: None (occurrence: None)
  Receive Date: 20100909
  Receipt Date: 20100909
  Transmission Date: 20110219
  Serious: Yes (Life-Threatening, Other)
  Sender: FDA-Public Use
  Company Number: None

PATIENT
  Sex: Female
  Weight: 58.9676 kg

DRUGS (1)
  1. DIVALPROEX SODIUM [Suspect]
     Dosage: 250MG 1 TID PO
     Route: 048
     Dates: start: 20090101, end: 20100601

REACTIONS (1)
  - CONVULSION [None]
